FAERS Safety Report 7651657-3 (Version None)
Quarter: 2011Q3

REPORT INFORMATION
  Report Type: 
  Country: None (occurrence: None)
  Receive Date: 20110802
  Receipt Date: 20110725
  Transmission Date: 20111222
  Serious: Yes (Life-Threatening, Hospitalization)
  Sender: FDA-Public Use
  Company Number: US-ASTRAZENECA-2011SE44533

PATIENT
  Age: 57 Year
  Sex: Female

DRUGS (2)
  1. SYMBICORT [Suspect]
     Dosage: 80/4.5 MCG DAILY
     Route: 055
  2. SYMBICORT [Suspect]
     Dosage: 160/4.5 TWO PUFFS TWICE A DAY
     Route: 055

REACTIONS (2)
  - PNEUMONIA [None]
  - INCORRECT DOSE ADMINISTERED [None]
